FAERS Safety Report 4915022-1 (Version None)
Quarter: 2006Q1

REPORT INFORMATION
  Report Type: 
  Country: None (occurrence: None)
  Receive Date: 20060217
  Receipt Date: 20060207
  Transmission Date: 20060701
  Serious: Yes (Hospitalization)
  Sender: FDA-Public Use
  Company Number: DE-JNJFOC-20050606521

PATIENT
  Sex: Female
  Weight: 47.5 kg

DRUGS (13)
  1. INFLIXIMAB [Suspect]
     Route: 042
  2. INFLIXIMAB [Suspect]
     Route: 042
  3. INFLIXIMAB [Suspect]
     Indication: CROHN'S DISEASE
     Route: 042
  4. PREDNISOLONE [Concomitant]
  5. PREDNISOLONE [Concomitant]
  6. PREDNISOLONE [Concomitant]
  7. PREDNISOLONE [Concomitant]
  8. PREDNISOLONE [Concomitant]
  9. PREDNISOLONE [Concomitant]
  10. PREDNISOLONE [Concomitant]
     Indication: CROHN'S DISEASE
  11. AZATHIOPRINE [Concomitant]
     Indication: CROHN'S DISEASE
  12. ANTIBIOTIC [Concomitant]
     Indication: CYSTITIS
  13. COLIFOAM [Concomitant]
     Indication: CROHN'S DISEASE

REACTIONS (1)
  - ABDOMINAL NEOPLASM [None]
